FAERS Safety Report 5098254-4 (Version None)
Quarter: 2006Q3

REPORT INFORMATION
  Report Type: 
  Country: None (occurrence: None)
  Receive Date: 20060906
  Receipt Date: 20060810
  Transmission Date: 20061208
  Serious: Yes (Hospitalization)
  Sender: FDA-Public Use
  Company Number: FRWYE648310AUG06

PATIENT
  Age: 8 Year
  Sex: Female

DRUGS (1)
  1. ENBREL [Suspect]
     Indication: JUVENILE ARTHRITIS
     Dosage: UNKNOWN, 2 TIMES WEEKLY
     Route: 058
     Dates: end: 20060401

REACTIONS (3)
  - IRIDOCYCLITIS [None]
  - KERATITIS [None]
  - UVEITIS [None]
